FAERS Safety Report 5825983-4 (Version None)
Quarter: 2008Q3

REPORT INFORMATION
  Report Type: 
  Country: None (occurrence: None)
  Receive Date: 20080729
  Receipt Date: 20080721
  Transmission Date: 20090109
  Serious: Yes (Life-Threatening, Hospitalization)
  Sender: FDA-Public Use
  Company Number: JP-SANOFI-SYNTHELABO-A01200808391

PATIENT
  Sex: Female

DRUGS (7)
  1. OXYCONTIN [Concomitant]
     Dosage: UNK
     Dates: start: 20071022
  2. TAKEPRON [Concomitant]
     Dosage: UNK
     Dates: start: 20071030
  3. KYTRIL [Concomitant]
     Dosage: UNK
     Dates: start: 20071128, end: 20071128
  4. AVASTIN [Suspect]
     Route: 041
     Dates: start: 20071212, end: 20071212
  5. FLUOROURACIL [Suspect]
     Route: 042
     Dates: start: 20071212, end: 20071213
  6. ISOVORIN [Suspect]
     Route: 041
     Dates: start: 20071212, end: 20071213
  7. ELPLAT [Suspect]
     Indication: COLON CANCER
     Route: 041
     Dates: start: 20071212, end: 20071212

REACTIONS (1)
  - GASTROINTESTINAL PERFORATION [None]
